FAERS Safety Report 9010751 (Version 1)
Quarter: 2013Q1

REPORT INFORMATION
  Report Type: Spontaneous
  Country: US (occurrence: US)
  Receive Date: 20130111
  Receipt Date: 20130111
  Transmission Date: 20140127
  Serious: Yes (Other)
  Sender: FDA-Public Use
  Company Number: PHEH2013US000991

PATIENT
  Sex: Female

DRUGS (8)
  1. DIOVAN [Suspect]
  2. SYNTHROID [Concomitant]
  3. ENABLEX [Concomitant]
  4. VYTORIN [Concomitant]
  5. ASPIRIN [Concomitant]
  6. METOPROLOL [Concomitant]
  7. AMLODIPINE [Concomitant]
  8. VITAMIN D3 [Concomitant]

REACTIONS (1)
  - Arthritis [Unknown]
